FAERS Safety Report 18368471 (Version 1)
Quarter: 2020Q4

REPORT INFORMATION
  Report Type: Spontaneous
  Country: NL (occurrence: NL)
  Receive Date: 20201010
  Receipt Date: 20201010
  Transmission Date: 20210114
  Serious: Yes (Hospitalization)
  Sender: FDA-Public Use
  Company Number: NL-ROCHE-2690154

PATIENT
  Age: 55 Year
  Sex: Female

DRUGS (4)
  1. RITUXIMAB. [Suspect]
     Active Substance: RITUXIMAB
     Indication: PRODUCT USED FOR UNKNOWN INDICATION
     Dosage: UNK
     Route: 065
     Dates: start: 20200902, end: 20200916
  2. PREDNISONE. [Concomitant]
     Active Substance: PREDNISONE
     Dosage: UNK
     Dates: start: 20200817
  3. PREDNISONE. [Concomitant]
     Active Substance: PREDNISONE
     Indication: SERUM SICKNESS
     Dosage: UNK MG
     Dates: end: 20200901
  4. CAPLACIZUMAB [Suspect]
     Active Substance: CAPLACIZUMAB
     Indication: THROMBOTIC THROMBOCYTOPENIC PURPURA
     Dosage: UNK
     Route: 065
     Dates: start: 20200817, end: 20200916

REACTIONS (9)
  - Rash pruritic [Unknown]
  - Nausea [Unknown]
  - Arthralgia [Unknown]
  - Myalgia [Unknown]
  - Pyrexia [Unknown]
  - Diarrhoea [Unknown]
  - Rash [Unknown]
  - Serum sickness [Recovering/Resolving]
  - Headache [Unknown]

NARRATIVE: CASE EVENT DATE: 202009
